FAERS Safety Report 4550897-X (Version None)
Quarter: 2004Q4

REPORT INFORMATION
  Report Type: 
  Country: None (occurrence: None)
  Receive Date: 20041217
  Receipt Date: 20040903
  Transmission Date: 20050328
  Serious: No
  Sender: FDA-Public Use
  Company Number: 2004-BP-07975BP

PATIENT
  Age: 78 Year
  Sex: Female
  Weight: 49.9 kg

DRUGS (5)
  1. SPIRIVA [Suspect]
     Dosage: (18 MCG), IH
     Route: 055
  2. ADVAIR (SERETIDE MITE) [Concomitant]
  3. PREMARIN [Concomitant]
  4. LEVODOPA (LEVODOPA) [Concomitant]
  5. XOPENEX [Concomitant]

REACTIONS (2)
  - DIZZINESS [None]
  - STOMATITIS [None]
